FAERS Safety Report 18034710 (Version 1)
Quarter: 2020Q3

REPORT INFORMATION
  Report Type: Report from Study
  Country: US (occurrence: US)
  Receive Date: 20200716
  Receipt Date: 20200716
  Transmission Date: 20201103
  Serious: Yes (Other)
  Sender: FDA-Public Use
  Company Number: US-AUROBINDO-AUR-APL-2020-034406

PATIENT
  Age: 59 Year
  Sex: Male

DRUGS (3)
  1. PEGINTERFERON ALFA?2A. [Suspect]
     Active Substance: PEGINTERFERON ALFA-2A
     Indication: HEPATITIS C
     Dosage: 180 MICROGRAM
     Route: 065
  2. TELAPREVIR [Concomitant]
     Active Substance: TELAPREVIR
     Indication: PRODUCT USED FOR UNKNOWN INDICATION
     Route: 065
  3. RIBAVIRIN. [Suspect]
     Active Substance: RIBAVIRIN
     Indication: HEPATITIS C
     Dosage: 1200 MILLIGRAM, ONCE A DAY
     Route: 065

REACTIONS (4)
  - Retinopathy [Recovered/Resolved]
  - Retinal haemorrhage [Recovered/Resolved]
  - Anaemia [Unknown]
  - Retinal exudates [Recovered/Resolved]
